FAERS Safety Report 16527916 (Version 1)
Quarter: 2019Q3

REPORT INFORMATION
  Report Type: Spontaneous
  Country: SE (occurrence: SE)
  Receive Date: 20190703
  Receipt Date: 20190703
  Transmission Date: 20191004
  Serious: Yes (Hospitalization)
  Sender: FDA-Public Use
  Company Number: SE-TEVA-2019-SE-1072282

PATIENT
  Age: 91 Year
  Sex: Female

DRUGS (13)
  1. BETOLVIDON 1 MG TABLETT [Concomitant]
     Active Substance: CYANOCOBALAMIN
  2. BISOPROLOL SANDOZ 5 MG FILMDRAGERAD TABLETT [Concomitant]
  3. LAXIDO APELSIN [Concomitant]
     Dosage: CAN BE INCREASED TO 3 TIMES A DAY IF NECESSARY
  4. FURIX 20 MG TABLETT (FUROSEMIDE) [Suspect]
     Active Substance: FUROSEMIDE
     Indication: OEDEMA PERIPHERAL
     Route: 048
     Dates: start: 201902, end: 20190528
  5. IMPUGAN 40 MG TABLETT [Suspect]
     Active Substance: FUROSEMIDE
     Indication: OEDEMA PERIPHERAL
     Dates: start: 201902, end: 20190528
  6. SPIRONOLAKTON PFIZER 50 MG TABLETT [Suspect]
     Active Substance: SPIRONOLACTONE
     Indication: HYPERTENSION
  7. FURIX 20 MG TABLETT (FUROSEMIDE) [Suspect]
     Active Substance: FUROSEMIDE
     Indication: HYPERTENSION
  8. CILAXORAL 7,5 MG/ML ORALA DROPPAR, LOSNING [Concomitant]
     Dosage: 5-15 DROPS VB
  9. IMPUGAN 40 MG TABLETT [Suspect]
     Active Substance: FUROSEMIDE
     Indication: HYPERTENSION
  10. LOSARTAN ACTAVIS 100 MG FILMDRAGERAD TABLETT [Suspect]
     Active Substance: LOSARTAN POTASSIUM
     Indication: HYPERTENSION
     Route: 048
     Dates: start: 201901, end: 20190528
  11. SPIRONOLAKTON PFIZER 50 MG TABLETT [Suspect]
     Active Substance: SPIRONOLACTONE
     Indication: OEDEMA PERIPHERAL
     Route: 048
     Dates: start: 201902, end: 20190528
  12. ELIQUIS 2,5 MG FILMDRAGERAD TABLETT [Concomitant]
     Dates: start: 201902
  13. ALVEDON FORTE 1 G FILMDRAGERAD TABLETT [Concomitant]
     Dosage: MAXIMUM 3 TABLETS/DAY

REACTIONS (2)
  - Hyperkalaemia [Not Recovered/Not Resolved]
  - Renal failure [Not Recovered/Not Resolved]

NARRATIVE: CASE EVENT DATE: 20190528
